FAERS Safety Report 5187582-X (Version None)
Quarter: 2006Q4

REPORT INFORMATION
  Report Type: 
  Country: None (occurrence: None)
  Receive Date: 20061220
  Receipt Date: 20060109
  Transmission Date: 20070319
  Serious: No
  Sender: FDA-Public Use
  Company Number: US-AMGEN-US164097

PATIENT
  Sex: Male

DRUGS (5)
  1. ENBREL [Suspect]
     Indication: RHEUMATOID ARTHRITIS
     Route: 065
     Dates: start: 20051201
  2. ARAVA [Concomitant]
     Route: 065
  3. POTASSIUM ACETATE [Concomitant]
     Route: 065
  4. GLIPIZIDE [Concomitant]
     Route: 065
  5. CARDIAC MEDICATION NOS [Concomitant]
     Route: 065

REACTIONS (8)
  - CONDITION AGGRAVATED [None]
  - DIARRHOEA [None]
  - HYPERGLYCAEMIA [None]
  - POLLAKIURIA [None]
  - RASH ERYTHEMATOUS [None]
  - SWELLING [None]
  - URTICARIA [None]
  - WEIGHT DECREASED [None]
